FAERS Safety Report 13939866 (Version 1)
Quarter: 2017Q3

REPORT INFORMATION
  Report Type: Spontaneous
  Country: US (occurrence: US)
  Receive Date: 20170906
  Receipt Date: 20170906
  Transmission Date: 20171127
  Serious: Yes (Hospitalization, Other)
  Sender: FDA-Public Use
  Company Number: US-WEST-WARD PHARMACEUTICALS CORP.-US-H14001-17-03264

PATIENT
  Age: 22 Year
  Sex: Female

DRUGS (1)
  1. DOXYCYCLINE. [Suspect]
     Active Substance: DOXYCYCLINE
     Indication: RASH
     Route: 065

REACTIONS (3)
  - Eosinophilic pneumonia [Recovering/Resolving]
  - Eosinophilic cellulitis [Recovering/Resolving]
  - Hypereosinophilic syndrome [Recovering/Resolving]
